FAERS Safety Report 6575801-4 (Version None)
Quarter: 2010Q1

REPORT INFORMATION
  Report Type: 
  Country: None (occurrence: None)
  Receive Date: 20100208
  Receipt Date: 20100208
  Transmission Date: 20100710
  Serious: No
  Sender: FDA-Public Use
  Company Number: None

PATIENT
  Sex: Female
  Weight: 122.4712 kg

DRUGS (2)
  1. HUMULIN R [Suspect]
     Indication: DIABETES MELLITUS
     Dosage: 10 - 12 UNITS BEFORE MEALS IM
     Route: 030
     Dates: start: 20090101
  2. HUMULIN N [Suspect]
     Indication: DIABETES MELLITUS
     Dosage: 56 UNITS MORNING AND EVENIN IM
     Route: 030
     Dates: start: 20100101

REACTIONS (5)
  - DIZZINESS [None]
  - GAIT DISTURBANCE [None]
  - IMPAIRED DRIVING ABILITY [None]
  - INSOMNIA [None]
  - REACTION TO PRESERVATIVES [None]
